FAERS Safety Report 4472949-5 (Version None)
Quarter: 2004Q4

REPORT INFORMATION
  Report Type: 
  Country: None (occurrence: None)
  Receive Date: 20041012
  Receipt Date: 20041012
  Transmission Date: 20050328
  Serious: Yes (Hospitalization)
  Sender: FDA-Public Use
  Company Number: None

PATIENT
  Age: 48 Year
  Sex: Male
  Weight: 95.3 kg

DRUGS (2)
  1. PHENYTOIN [Suspect]
     Indication: CONVULSION
     Dosage: 300 MG. 100 MG TID, ORAL
     Route: 048
     Dates: end: 20040713
  2. FLUOXETINE [Concomitant]

REACTIONS (1)
  - DRUG TOXICITY [None]
